FAERS Safety Report 7063487-4 (Version None)
Quarter: 2010Q4

REPORT INFORMATION
  Report Type: 
  Country: None (occurrence: None)
  Receive Date: 20101026
  Receipt Date: 20100408
  Transmission Date: 20110411
  Serious: No
  Sender: FDA-Public Use
  Company Number: US-ABBOTT-10P-163-0638640-00

PATIENT
  Sex: Female
  Weight: 127.12 kg

DRUGS (5)
  1. LUPRON DEPOT [Suspect]
     Indication: ENDOMETRIOSIS
     Dates: start: 20091229
  2. METFORMIN [Concomitant]
     Indication: TYPE 2 DIABETES MELLITUS
  3. ALTACE [Concomitant]
     Indication: HYPERTENSION
  4. SINGULAIR [Concomitant]
     Indication: ASTHMA
  5. UNKNOWN WATER PILL [Concomitant]
     Indication: SWELLING

REACTIONS (4)
  - ABDOMINAL DISTENSION [None]
  - IRRITABILITY [None]
  - MENORRHAGIA [None]
  - MUSCLE SPASMS [None]
